FAERS Safety Report 9411290 (Version 1)
Quarter: 2013Q3

REPORT INFORMATION
  Report Type: Spontaneous
  Country: US (occurrence: US)
  Receive Date: 20130722
  Receipt Date: 20130722
  Transmission Date: 20140515
  Serious: No
  Sender: FDA-Public Use
  Company Number: US-BIOGENIDEC-2013BI052506

PATIENT
  Age: 59 Year
  Sex: Female

DRUGS (1)
  1. AVONEX [Suspect]
     Indication: MULTIPLE SCLEROSIS
     Route: 030
     Dates: start: 20130404, end: 20130627

REACTIONS (12)
  - Vertigo [Recovered/Resolved with Sequelae]
  - Gait disturbance [Not Recovered/Not Resolved]
  - Tinnitus [Recovered/Resolved]
  - Balance disorder [Not Recovered/Not Resolved]
  - Swollen tongue [Recovered/Resolved with Sequelae]
  - Tongue blistering [Recovered/Resolved with Sequelae]
  - General symptom [Unknown]
  - Pain [Not Recovered/Not Resolved]
  - Nausea [Recovered/Resolved]
  - Influenza like illness [Recovered/Resolved with Sequelae]
  - Insomnia [Recovered/Resolved]
  - Vomiting [Not Recovered/Not Resolved]
